FAERS Safety Report 4349079-6 (Version None)
Quarter: 2004Q2

REPORT INFORMATION
  Report Type: 
  Country: None (occurrence: None)
  Receive Date: 20040423
  Receipt Date: 20040217
  Transmission Date: 20050107
  Serious: Yes (Death)
  Sender: FDA-Public Use
  Company Number: 430001X04GBR

PATIENT
  Age: 66 Year
  Sex: Female

DRUGS (9)
  1. NOVANTRONE [Suspect]
     Indication: B-CELL LYMPHOMA
     Dosage: 24 MG, 1 IN 4 WEEKS, INTRAVENOUS
     Route: 042
     Dates: start: 20030730, end: 20031217
  2. FLUDARABINE PHOSPHATE [Concomitant]
  3. DEXAMETHASONE [Concomitant]
  4. ANTIBIOTICS [Concomitant]
  5. ACYCLOVIR [Concomitant]
  6. DOMPERIDONE [Concomitant]
  7. FLUCLOXACILLIN [Concomitant]
  8. CIPROFLOXACIN [Concomitant]
  9. LANSOPRAZOLE [Concomitant]

REACTIONS (5)
  - CELLULITIS [None]
  - CONDITION AGGRAVATED [None]
  - DISEASE RECURRENCE [None]
  - LIMB INJURY [None]
  - SEPSIS [None]
